FAERS Safety Report 4397371-1 (Version None)
Quarter: 2004Q3

REPORT INFORMATION
  Report Type: 
  Country: None (occurrence: None)
  Receive Date: 20040714
  Receipt Date: 20040702
  Transmission Date: 20050211
  Serious: Yes (Hospitalization)
  Sender: FDA-Public Use
  Company Number: FR-BRISTOL-MYERS SQUIBB COMPANY-12631065

PATIENT
  Age: 37 Year
  Sex: Male

DRUGS (3)
  1. VIDEX [Suspect]
     Route: 048
     Dates: start: 20030122, end: 20030525
  2. VIREAD [Suspect]
     Route: 048
     Dates: start: 20030122, end: 20030525
  3. EPIVIR [Concomitant]
     Dates: start: 20030122

REACTIONS (1)
  - PANCREATITIS [None]
